FAERS Safety Report 24939381 (Version 1)
Quarter: 2025Q1

REPORT INFORMATION
  Report Type: Spontaneous
  Country: PL (occurrence: PL)
  Receive Date: 20250206
  Receipt Date: 20250206
  Transmission Date: 20250409
  Serious: Yes (Other)
  Sender: ABBVIE
  Company Number: PL-JNJFOC-20250192455

PATIENT

DRUGS (2)
  1. IMBRUVICA [Suspect]
     Active Substance: IBRUTINIB
     Indication: Chronic lymphocytic leukaemia
     Route: 048
  2. VENETOCLAX [Suspect]
     Active Substance: VENETOCLAX
     Indication: Chronic lymphocytic leukaemia
     Route: 048

REACTIONS (18)
  - Cardiac arrest [Unknown]
  - Vomiting [Unknown]
  - Nausea [Unknown]
  - Chills [Unknown]
  - Cholestasis [Unknown]
  - Thrombocytopenia [Unknown]
  - Rash [Unknown]
  - Upper respiratory tract infection [Unknown]
  - Epistaxis [Unknown]
  - Arrhythmia [Unknown]
  - Cough [Unknown]
  - Decreased appetite [Unknown]
  - Hyperphosphataemia [Unknown]
  - Constipation [Unknown]
  - Neutropenia [Unknown]
  - Hyponatraemia [Unknown]
  - Arthralgia [Unknown]
  - Diarrhoea [Unknown]
